FAERS Safety Report 7319124-4 (Version None)
Quarter: 2011Q1

REPORT INFORMATION
  Report Type: 
  Country: None (occurrence: None)
  Receive Date: 20110228
  Receipt Date: 20110215
  Transmission Date: 20110831
  Serious: Yes (Other)
  Sender: FDA-Public Use
  Company Number: PHHY2011FR13335

PATIENT
  Sex: Female

DRUGS (2)
  1. ZOMETA [Suspect]
     Indication: BREAST CANCER METASTATIC
  2. NAVELBINE [Concomitant]
     Dosage: UNK
     Route: 048

REACTIONS (7)
  - OSTEONECROSIS OF JAW [None]
  - TOOTH DISORDER [None]
  - TOOTH ABSCESS [None]
  - OSTEONECROSIS [None]
  - TOOTH LOSS [None]
  - OROANTRAL FISTULA [None]
  - INFECTION [None]
